FAERS Safety Report 20818013 (Version 1)
Quarter: 2022Q2

REPORT INFORMATION
  Report Type: Spontaneous
  Country: US (occurrence: None)
  Receive Date: 20220511
  Receipt Date: 20220511
  Transmission Date: 20220721
  Serious: Yes (Hospitalization)
  Sender: FDA-Public Use
  Company Number: None

PATIENT
  Sex: Female
  Weight: 65.77 kg

DRUGS (10)
  1. IBRANCE [Suspect]
     Active Substance: PALBOCICLIB
     Indication: Breast cancer
     Dosage: OTHER FREQUENCY : QDX21DAYS;?
     Route: 048
     Dates: start: 201808
  2. DILTAZEM [Concomitant]
  3. LETROZOLE [Concomitant]
     Active Substance: LETROZOLE
  4. LEVOTHYROXINE [Concomitant]
     Active Substance: LEVOTHYROXINE
  5. MIRTAZAPINE [Concomitant]
     Active Substance: MIRTAZAPINE
  6. OMPRAZOLE [Concomitant]
  7. OXYCODONE [Concomitant]
     Active Substance: OXYCODONE
  8. PRAVAS [Concomitant]
  9. TYLENOL [Concomitant]
     Active Substance: ACETAMINOPHEN
  10. VENLAFAXINE [Concomitant]
     Active Substance: VENLAFAXINE HYDROCHLORIDE

REACTIONS (2)
  - Fall [None]
  - Therapy interrupted [None]
